FAERS Safety Report 16390217 (Version 1)
Quarter: 2019Q2

REPORT INFORMATION
  Report Type: Report from Study
  Country: US (occurrence: US)
  Receive Date: 20190604
  Receipt Date: 20190604
  Transmission Date: 20190711
  Serious: Yes (Other)
  Sender: FDA-Public Use
  Company Number: US-JNJFOC-20190602613

PATIENT
  Sex: Male

DRUGS (12)
  1. FISH OIL [Concomitant]
     Active Substance: FISH OIL
  2. GABAPENTIN. [Concomitant]
     Active Substance: GABAPENTIN
  3. WELCHOL [Concomitant]
     Active Substance: COLESEVELAM HYDROCHLORIDE
  4. IMBRUVICA [Suspect]
     Active Substance: IBRUTINIB
     Indication: CHRONIC LYMPHOCYTIC LEUKAEMIA
     Route: 048
     Dates: start: 20180731
  5. IMBRUVICA [Suspect]
     Active Substance: IBRUTINIB
     Indication: CHRONIC LYMPHOCYTIC LEUKAEMIA
     Route: 048
     Dates: start: 20180609, end: 20180730
  6. LANSOPRAZOLE. [Concomitant]
     Active Substance: LANSOPRAZOLE
  7. VITAMIN D3 [Concomitant]
     Active Substance: CHOLECALCIFEROL
  8. VESICARE [Concomitant]
     Active Substance: SOLIFENACIN SUCCINATE
  9. ALEVE [Concomitant]
     Active Substance: NAPROXEN SODIUM
  10. GLUCOSAMINE CHONDROITIN SULFATE [Concomitant]
  11. COENZYME Q10 [Concomitant]
     Active Substance: UBIDECARENONE
  12. MOMETASONE FUROATE. [Concomitant]
     Active Substance: MOMETASONE FUROATE

REACTIONS (1)
  - Cardiac disorder [Unknown]
